FAERS Safety Report 24132448 (Version 1)
Quarter: 2024Q3

REPORT INFORMATION
  Report Type: Spontaneous
  Country: DE (occurrence: DE)
  Receive Date: 20240724
  Receipt Date: 20240724
  Transmission Date: 20241016
  Serious: Yes (Life-Threatening, Hospitalization, Other)
  Sender: BRISTOL MYERS SQUIBB
  Company Number: DE-BRISTOL-MYERS SQUIBB COMPANY-2024-117553

PATIENT
  Age: 68 Year
  Sex: Male

DRUGS (1)
  1. ELIQUIS [Suspect]
     Active Substance: APIXABAN
     Indication: Atrial flutter
     Dates: start: 202407

REACTIONS (4)
  - Renal haemorrhage [Unknown]
  - Nephrolithiasis [Unknown]
  - Blood creatinine [Unknown]
  - Off label use [Unknown]

NARRATIVE: CASE EVENT DATE: 20240713
